FAERS Safety Report 7763011-4 (Version None)
Quarter: 2011Q3

REPORT INFORMATION
  Report Type: 
  Country: None (occurrence: None)
  Receive Date: 20110920
  Receipt Date: 20110912
  Transmission Date: 20111222
  Serious: Yes (Death)
  Sender: FDA-Public Use
  Company Number: US-CEPHALON-2011001971

PATIENT
  Sex: Female
  Weight: 79 kg

DRUGS (13)
  1. COPAXONE [Concomitant]
  2. FLUCONAZOLE [Concomitant]
  3. PROVIGIL [Suspect]
     Route: 048
     Dates: start: 20101101, end: 20110201
  4. HYDROMORPHONE [Concomitant]
  5. ACETAMINOPHEN [Concomitant]
  6. DEXAMETHASONE [Concomitant]
  7. ESOMEPRAZOLE MAGNESIUM [Concomitant]
  8. NYSTATIN [Concomitant]
  9. GABAPENTIN [Concomitant]
  10. TOPAMAX [Concomitant]
  11. METOCLOPRAMIDE [Concomitant]
  12. PROMETHAZINE [Concomitant]
  13. SCOPOLAMINE [Concomitant]

REACTIONS (1)
  - MALIGNANT MELANOMA [None]
